FAERS Safety Report 8221388-X (Version None)
Quarter: 2012Q1

REPORT INFORMATION
  Report Type: 
  Country: None (occurrence: None)
  Receive Date: 20120320
  Receipt Date: 20120316
  Transmission Date: 20120608
  Serious: Yes (Life-Threatening, Hospitalization)
  Sender: FDA-Public Use
  Company Number: PHHY2012JP020063

PATIENT
  Age: 40 Year
  Sex: Male

DRUGS (3)
  1. LOXONIN [Suspect]
     Route: 048
  2. TEGRETOL [Suspect]
     Dosage: 200 MG, DAILY
     Route: 048
     Dates: start: 20120312
  3. TEGRETOL [Suspect]
     Indication: CONVULSION PROPHYLAXIS
     Dosage: 200 MG, DAILY
     Route: 048

REACTIONS (4)
  - BLOOD CREATININE INCREASED [None]
  - CONVULSION [None]
  - RENAL DISORDER [None]
  - GLOMERULAR FILTRATION RATE DECREASED [None]
